FAERS Safety Report 20453417 (Version 1)
Quarter: 2022Q1

REPORT INFORMATION
  Report Type: Spontaneous
  Country: FR (occurrence: FR)
  Receive Date: 20220210
  Receipt Date: 20220210
  Transmission Date: 20220423
  Serious: Yes (Other)
  Sender: FDA-Public Use
  Company Number: None

PATIENT
  Age: 35 Year
  Sex: Female
  Weight: 95 kg

DRUGS (4)
  1. CLOZAPINE [Interacting]
     Active Substance: CLOZAPINE
     Indication: Psychotic disorder
     Route: 048
  2. LEVOMEPROMAZINE [Interacting]
     Active Substance: LEVOMEPROMAZINE
     Indication: Psychotic disorder
     Route: 048
  3. LORAZEPAM [Interacting]
     Active Substance: LORAZEPAM
     Indication: Mental disorder
     Route: 048
  4. HALDOL [Interacting]
     Active Substance: HALOPERIDOL
     Indication: Psychotic disorder
     Route: 048

REACTIONS (2)
  - Constipation [Unknown]
  - Drug interaction [Unknown]

NARRATIVE: CASE EVENT DATE: 20210819
